FAERS Safety Report 4474607-X (Version None)
Quarter: 2004Q4

REPORT INFORMATION
  Report Type: 
  Country: None (occurrence: None)
  Receive Date: 20041008
  Receipt Date: 20040920
  Transmission Date: 20050328
  Serious: Yes (Hospitalization)
  Sender: FDA-Public Use
  Company Number: FR_040904820

PATIENT
  Age: 37 Year
  Sex: Female
  Weight: 45 kg

DRUGS (1)
  1. ZYPREXA [Suspect]
     Dosage: 10 MG /1 DAY
     Dates: start: 20040809, end: 20040810

REACTIONS (6)
  - CYANOSIS [None]
  - FALL [None]
  - HYPOTENSION [None]
  - MALAISE [None]
  - PALLOR [None]
  - SYNCOPE VASOVAGAL [None]
